FAERS Safety Report 18796835 (Version 2)
Quarter: 2021Q4

REPORT INFORMATION
  Report Type: Spontaneous
  Country: CN (occurrence: None)
  Receive Date: 20210128
  Receipt Date: 20211125
  Transmission Date: 20220303
  Serious: Yes (Other)
  Sender: FDA-Public Use
  Company Number: CN-ROCHE-2755340

PATIENT
  Sex: Male

DRUGS (14)
  1. MABTHERA [Suspect]
     Active Substance: RITUXIMAB
     Indication: Mantle cell lymphoma stage IV
     Route: 065
     Dates: start: 20200101
  2. MABTHERA [Suspect]
     Active Substance: RITUXIMAB
     Route: 065
     Dates: start: 20200704
  3. MABTHERA [Suspect]
     Active Substance: RITUXIMAB
     Route: 065
     Dates: start: 20200805
  4. CYCLOPHOSPHAMIDE [Concomitant]
     Active Substance: CYCLOPHOSPHAMIDE
     Indication: Mantle cell lymphoma stage IV
     Dates: start: 20200704
  5. CYCLOPHOSPHAMIDE [Concomitant]
     Active Substance: CYCLOPHOSPHAMIDE
     Dates: start: 20200101
  6. PIRARUBICIN [Concomitant]
     Active Substance: PIRARUBICIN
     Indication: Mantle cell lymphoma stage IV
     Dates: start: 20200704
  7. PIRARUBICIN [Concomitant]
     Active Substance: PIRARUBICIN
     Dates: start: 20200101
  8. VINCRISTINE [Concomitant]
     Active Substance: VINCRISTINE
     Indication: Mantle cell lymphoma stage IV
     Dates: start: 20200704
  9. PREDNISONE [Concomitant]
     Active Substance: PREDNISONE
     Indication: Mantle cell lymphoma stage IV
     Dates: start: 20200704
  10. PREDNISONE [Concomitant]
     Active Substance: PREDNISONE
     Dates: start: 20200101
  11. CISPLATIN [Concomitant]
     Active Substance: CISPLATIN
     Indication: Mantle cell lymphoma stage IV
     Dates: start: 20200805
  12. CYTARABINE [Concomitant]
     Active Substance: CYTARABINE
     Indication: Mantle cell lymphoma stage IV
     Dates: start: 20200805
  13. DEXAMETHASONE [Concomitant]
     Active Substance: DEXAMETHASONE
     Indication: Mantle cell lymphoma stage IV
     Dates: start: 20200805
  14. BORTEZOMIB [Concomitant]
     Active Substance: BORTEZOMIB
     Indication: Mantle cell lymphoma stage IV
     Dates: start: 20200101

REACTIONS (3)
  - Pneumonia [Recovering/Resolving]
  - Myelosuppression [Recovering/Resolving]
  - Off label use [Unknown]
